FAERS Safety Report 23385162 (Version 1)
Quarter: 2024Q1

REPORT INFORMATION
  Report Type: Spontaneous
  Country: US (occurrence: US)
  Receive Date: 20240110
  Receipt Date: 20240110
  Transmission Date: 20240410
  Serious: No
  Sender: FDA-Public Use
  Company Number: US-SA-SAC20240101000848

PATIENT
  Age: 53 Year
  Sex: Male

DRUGS (3)
  1. DUPIXENT [Suspect]
     Active Substance: DUPILUMAB
     Indication: Eczema
     Dosage: UNK
     Route: 003
     Dates: start: 20231012
  2. DUPIXENT [Suspect]
     Active Substance: DUPILUMAB
     Indication: Urticaria
  3. DUPIXENT [Suspect]
     Active Substance: DUPILUMAB
     Indication: Rash macular

REACTIONS (5)
  - Pruritus [Recovering/Resolving]
  - Urticaria [Recovering/Resolving]
  - Product use in unapproved indication [Unknown]
  - Incorrect route of product administration [Unknown]
  - Incorrect dose administered [Unknown]

NARRATIVE: CASE EVENT DATE: 20231012
